FAERS Safety Report 21677789 (Version 2)
Quarter: 2023Q1

REPORT INFORMATION
  Report Type: Report from Study
  Country: US (occurrence: US)
  Receive Date: 20221203
  Receipt Date: 20230303
  Transmission Date: 20230417
  Serious: No
  Sender: FDA-Public Use
  Company Number: US-ABBVIE-22K-163-4490017-00

PATIENT
  Sex: Female

DRUGS (3)
  1. SKYRIZI [Suspect]
     Active Substance: RISANKIZUMAB-RZAA
     Indication: Psoriasis
     Route: 058
     Dates: start: 20191010
  2. Pfizer BioNTech COVID-19 vaccine (Tozinameran) [Concomitant]
     Indication: COVID-19 immunisation
     Dosage: TIME INTERVAL: 1 TOTAL
     Route: 030
  3. METHOTREXATE [Suspect]
     Active Substance: METHOTREXATE
     Indication: Pruritus
     Dosage: SMALL DOSE
     Route: 065
     Dates: start: 202211

REACTIONS (3)
  - Alopecia [Unknown]
  - Psoriasis [Unknown]
  - Therapeutic response shortened [Unknown]
